FAERS Safety Report 24376477 (Version 1)
Quarter: 2024Q3

REPORT INFORMATION
  Report Type: Spontaneous
  Country: US (occurrence: US)
  Receive Date: 20240930
  Receipt Date: 20240930
  Transmission Date: 20241017
  Serious: No
  Sender: ROCHE
  Company Number: US-ROCHE-10000088964

PATIENT
  Sex: Female

DRUGS (11)
  1. XOLAIR [Suspect]
     Active Substance: OMALIZUMAB
     Indication: Asthma
     Dosage: INJECT 225MG SUBCUTANEOUSLY EVERY TWO WEEKS.?STRENGTH: 75MG 0.5ML.
     Route: 058
  2. BUPROPION HC TB1 [Concomitant]
  3. COLLAGEN 150 CAP 500-50-0 [Concomitant]
  4. DULOXETINE ? CPE 30MG [Concomitant]
  5. KRILL OIL OM CAP 500MG [Concomitant]
  6. LOSARTAN POT TAB 50MG [Concomitant]
  7. MARSHMALLOW LIQ [Concomitant]
  8. METFORMIN HC TAB 500MG [Concomitant]
  9. OMEPRAZOLE [Concomitant]
     Active Substance: OMEPRAZOLE
  10. SINGULAIR [Concomitant]
     Active Substance: MONTELUKAST SODIUM
  11. TOPIRAMATE [Concomitant]
     Active Substance: TOPIRAMATE

REACTIONS (3)
  - COVID-19 [Not Recovered/Not Resolved]
  - Asthma [Not Recovered/Not Resolved]
  - Neuropathy peripheral [Not Recovered/Not Resolved]
